FAERS Safety Report 23757959 (Version 1)
Quarter: 2024Q2

REPORT INFORMATION
  Report Type: Spontaneous
  Country: US (occurrence: US)
  Receive Date: 20240418
  Receipt Date: 20240418
  Transmission Date: 20240715
  Serious: No
  Sender: FDA-Public Use
  Company Number: US-SMPA-2024SUN000268AA

PATIENT

DRUGS (4)
  1. LATUDA [Suspect]
     Active Substance: LURASIDONE HYDROCHLORIDE
     Dosage: 60 MG, QD
     Route: 048
     Dates: start: 2020
  2. ATOMOXETINE [Concomitant]
     Active Substance: ATOMOXETINE\ATOMOXETINE HYDROCHLORIDE
     Indication: Attention deficit hyperactivity disorder
     Dosage: 25 MG, BID
     Route: 048
  3. GUANFACINE [Concomitant]
     Active Substance: GUANFACINE
     Indication: Aggression
     Dosage: 2 MG, BID
     Route: 048
  4. GUANFACINE [Concomitant]
     Active Substance: GUANFACINE
     Indication: Agitation

REACTIONS (4)
  - Tic [Not Recovered/Not Resolved]
  - Distractibility [Unknown]
  - Anxiety [Not Recovered/Not Resolved]
  - Off label use [Unknown]
